FAERS Safety Report 7106175-8 (Version None)
Quarter: 2010Q4

REPORT INFORMATION
  Report Type: 
  Country: None (occurrence: None)
  Receive Date: 20101116
  Receipt Date: 20101111
  Transmission Date: 20110411
  Serious: Yes (Hospitalization, Other)
  Sender: FDA-Public Use
  Company Number: US-ROXANE LABORATORIES, INC.-2010-RO-01491RO

PATIENT
  Age: 49 Year
  Sex: Male

DRUGS (3)
  1. LITHIUM CARBONATE [Suspect]
     Indication: BIPOLAR DISORDER
  2. MIDAZOLAM [Suspect]
     Indication: SEROTONIN SYNDROME
  3. TRANYLCYPROMINE SULFATE [Suspect]
     Indication: BIPOLAR DISORDER

REACTIONS (4)
  - CONDITION AGGRAVATED [None]
  - DRUG INTERACTION [None]
  - ILEUS [None]
  - SEROTONIN SYNDROME [None]
